FAERS Safety Report 23923437 (Version 3)
Quarter: 2024Q4

REPORT INFORMATION
  Report Type: Report from Study
  Country: CN (occurrence: CN)
  Receive Date: 20240531
  Receipt Date: 20241226
  Transmission Date: 20250114
  Serious: Yes (Other)
  Sender: ROCHE
  Company Number: CN-ROCHE-3568193

PATIENT
  Age: 80 Year
  Sex: Female

DRUGS (9)
  1. POLATUZUMAB VEDOTIN [Suspect]
     Active Substance: POLATUZUMAB VEDOTIN
     Indication: Diffuse large B-cell lymphoma
     Dosage: SUBSEQUENT DOSE ON 10-JUL-2023 AND 28-AUG-2023
     Route: 041
     Dates: start: 20230708, end: 20230708
  2. RITUXIMAB [Suspect]
     Active Substance: RITUXIMAB
     Indication: Diffuse large B-cell lymphoma
     Dosage: SUBSEQUENT DOSE ON 03-AUG-2023 AND 29-AUG-2023
     Route: 042
     Dates: start: 20230708, end: 20230708
  3. DOXORUBICIN [Suspect]
     Active Substance: DOXORUBICIN
     Indication: Diffuse large B-cell lymphoma
     Dosage: SUBSEQUENT DOSE ON 28-AUG-2023
     Route: 065
     Dates: start: 20230708, end: 20230708
  4. VORICONAZOLE [Suspect]
     Active Substance: VORICONAZOLE
     Indication: Oral fungal infection
     Route: 048
     Dates: end: 20230821
  5. GLUTATHIONE [Concomitant]
     Active Substance: GLUTATHIONE
     Dates: start: 20230822
  6. VANCOMYCIN HYDROCHLORIDE [Concomitant]
     Active Substance: VANCOMYCIN HYDROCHLORIDE
     Dates: start: 20230723
  7. CEFOPERAZONE SODIUM\SULBACTAM SODIUM [Concomitant]
     Active Substance: CEFOPERAZONE SODIUM\SULBACTAM SODIUM
     Dates: start: 20230814
  8. MEROPENEM [Concomitant]
     Active Substance: MEROPENEM
     Dates: start: 20230817
  9. POTASSIUM CITRATE [Concomitant]
     Active Substance: POTASSIUM CITRATE
     Route: 048
     Dates: start: 20230718, end: 20230912

REACTIONS (8)
  - Myocardial injury [Recovered/Resolved]
  - Oral fungal infection [Recovered/Resolved]
  - Gastrointestinal infection [Recovered/Resolved]
  - Agranulocytosis [Recovered/Resolved]
  - Liver injury [Recovered/Resolved]
  - Urinary tract infection [Recovered/Resolved]
  - Thrombosis [Recovered/Resolved]
  - Diarrhoea [Recovered/Resolved]

NARRATIVE: CASE EVENT DATE: 20230710
